FAERS Safety Report 18555512 (Version 1)
Quarter: 2020Q4

REPORT INFORMATION
  Report Type: Report from Study
  Country: BR (occurrence: BR)
  Receive Date: 20201127
  Receipt Date: 20201127
  Transmission Date: 20210114
  Serious: Yes (Disabling, Other)
  Sender: FDA-Public Use
  Company Number: BR-TAKEDA-BR202033869

PATIENT
  Sex: Male
  Weight: 80 kg

DRUGS (1)
  1. HEMO-8R [Suspect]
     Active Substance: ANTIHEMOPHILIC FACTOR, HUMAN RECOMBINANT
     Indication: FACTOR VIII DEFICIENCY
     Dosage: 1250 INTERNATIONAL UNIT, 3/WEEK
     Route: 042
     Dates: start: 20090917

REACTIONS (5)
  - Malaise [Recovering/Resolving]
  - Disability [Not Recovered/Not Resolved]
  - Nasal congestion [Unknown]
  - Pain in extremity [Unknown]
  - Limb injury [Recovering/Resolving]
